FAERS Safety Report 21601750 (Version 1)
Quarter: 2022Q4

REPORT INFORMATION
  Report Type: Spontaneous
  Country: US (occurrence: None)
  Receive Date: 20221115
  Receipt Date: 20221115
  Transmission Date: 20230113
  Serious: Yes (Other)
  Sender: FDA-Public Use
  Company Number: None

PATIENT
  Sex: Female

DRUGS (7)
  1. ALECENSA [Suspect]
     Active Substance: ALECTINIB HYDROCHLORIDE
     Indication: Hypothyroidism
     Dosage: FREQUENCY : TWICE A DAY;?TAKE 4 CAPSULES (600 MG) BY MOUTH TWICE DAILY WITH MEALS?
     Route: 048
     Dates: start: 20210424
  2. EUTHYROX TAB [Concomitant]
  3. LEVOXYL TAB [Concomitant]
  4. LINZESS CAP [Concomitant]
  5. METOCLOPRAM TAB [Concomitant]
  6. ONDANSETRON TAB ODT [Concomitant]
  7. PREDNISONE [Concomitant]
     Active Substance: PREDNISONE

REACTIONS (1)
  - Hepatic enzyme increased [None]
